FAERS Safety Report 4673788-2 (Version None)
Quarter: 2005Q2

REPORT INFORMATION
  Report Type: 
  Country: None (occurrence: None)
  Receive Date: 20050524
  Receipt Date: 20050511
  Transmission Date: 20051028
  Serious: Yes (Other)
  Sender: FDA-Public Use
  Company Number: GBWYE612825APR05

PATIENT
  Age: 58 Year
  Sex: Female

DRUGS (1)
  1. PREMIQUE (CONJUGATED ESTROGENS/MEDROXYPROGESTERONE ACETATE, TABLET, 5 [Suspect]
     Indication: MENOPAUSAL SYMPTOMS
     Dosage: SEE IMAGE
     Route: 048

REACTIONS (3)
  - ABDOMINAL PAIN LOWER [None]
  - PELVIC PAIN [None]
  - POSTMENOPAUSAL HAEMORRHAGE [None]
